FAERS Safety Report 4500962-8 (Version None)
Quarter: 2004Q4

REPORT INFORMATION
  Report Type: 
  Country: None (occurrence: None)
  Receive Date: 20041115
  Receipt Date: 20041108
  Transmission Date: 20050328
  Serious: Yes (Hospitalization)
  Sender: FDA-Public Use
  Company Number: AU-ROCHE-385588

PATIENT
  Age: 58 Year
  Sex: Female
  Weight: 50 kg

DRUGS (2)
  1. CAPECITABINE [Suspect]
     Route: 048
  2. GEMCITABINE [Suspect]
     Dosage: GIVEN ON DAYS ONE AND FOUR WEEKLY.
     Route: 042

REACTIONS (1)
  - CIRCULATORY COLLAPSE [None]
